FAERS Safety Report 24411110 (Version 1)
Quarter: 2024Q4

REPORT INFORMATION
  Report Type: Report from Study
  Country: DE (occurrence: DE)
  Receive Date: 20241008
  Receipt Date: 20241008
  Transmission Date: 20250115
  Serious: Yes (Hospitalization, Other)
  Sender: SANDOZ
  Company Number: DE-SZ09-GXKR2013DE001563

PATIENT
  Age: 46 Year
  Sex: Female
  Weight: 76 kg

DRUGS (1)
  1. FILGRASTIM [Suspect]
     Active Substance: FILGRASTIM
     Indication: Stem cell donor
     Dosage: 300 UG, BID
     Route: 058
     Dates: start: 20110611, end: 20110615

REACTIONS (2)
  - Thyroid mass [Recovered/Resolved]
  - Goitre [Recovered/Resolved]

NARRATIVE: CASE EVENT DATE: 20120412
